FAERS Safety Report 10287301 (Version 2)
Quarter: 2014Q1

REPORT INFORMATION
  Report Type: Spontaneous
  Country: US (occurrence: None)
  Receive Date: 20120817
  Receipt Date: 20130815
  Transmission Date: 20141002
  Serious: Yes (Other)
  Sender: FDA-Public Use
  Company Number: ADR-2011-10149

PATIENT
  Sex: Male

DRUGS (1)
  1. LIORESAL [Suspect]
     Indication: MUSCLE SPASTICITY
     Dosage: SEE B5

REACTIONS (6)
  - Muscle spasticity [None]
  - Discomfort [None]
  - Muscle spasms [None]
  - Therapeutic response decreased [None]
  - Muscle contracture [None]
  - Infusion site mass [None]
